FAERS Safety Report 6533037-7 (Version None)
Quarter: 2010Q1

REPORT INFORMATION
  Report Type: 
  Country: None (occurrence: None)
  Receive Date: 20100111
  Receipt Date: 20091231
  Transmission Date: 20100710
  Serious: Yes (Other)
  Sender: FDA-Public Use
  Company Number: FR-PFIZER INC-2010000138

PATIENT

DRUGS (1)
  1. DALACINE [Suspect]
     Indication: TOXOPLASMOSIS PROPHYLAXIS
     Dosage: UNK
     Dates: start: 20090601

REACTIONS (3)
  - ANAEMIA [None]
  - NEUTROPENIA [None]
  - THROMBOCYTOPENIA [None]
